FAERS Safety Report 9430643 (Version 1)
Quarter: 2013Q3

REPORT INFORMATION
  Report Type: Spontaneous
  Country: DE (occurrence: None)
  Receive Date: 20130726
  Receipt Date: 20130726
  Transmission Date: 20140515
  Serious: Yes (Other)
  Sender: FDA-Public Use
  Company Number: AG-2013-014635

PATIENT
  Age: 70 Year
  Sex: 0

DRUGS (2)
  1. CHLORAMBUCIL [Suspect]
     Indication: CHRONIC LYMPHOCYTIC LEUKAEMIA
     Dosage: DAY1, DAY15, DAY 28, ORAL
  2. RITUXIMAB [Suspect]
     Indication: CHRONIC LYMPHOCYTIC LEUKAEMIA
     Dosage: 1136 MILLIGRAM (UNKNOWN, DAY 1, DAY 28), INTRAVENOUS
     Dates: start: 20111129, end: 20120320

REACTIONS (1)
  - Basal cell carcinoma [None]
